FAERS Safety Report 6597708-9 (Version None)
Quarter: 2010Q1

REPORT INFORMATION
  Report Type: 
  Country: None (occurrence: None)
  Receive Date: 20100216
  Receipt Date: 20100201
  Transmission Date: 20100710
  Serious: Yes (Hospitalization)
  Sender: FDA-Public Use
  Company Number: 1-21555951

PATIENT
  Age: 72 Year
  Sex: Female

DRUGS (3)
  1. FENTANYL-25 [Suspect]
     Indication: PAIN
     Dosage: 75 MCG/HR EVERY 72 HR, TRANSDERMAL
     Route: 062
  2. DICLOFENAC [Concomitant]
  3. METAMIZOL [Concomitant]

REACTIONS (15)
  - ABDOMINAL PAIN [None]
  - ANAEMIA [None]
  - BACK PAIN [None]
  - CLOSTRIDIAL INFECTION [None]
  - COGNITIVE DISORDER [None]
  - DIARRHOEA [None]
  - HEPATIC FAILURE [None]
  - HYPOTONIA [None]
  - MIOSIS [None]
  - NARCOTIC INTOXICATION [None]
  - PYREXIA [None]
  - RENAL FAILURE ACUTE [None]
  - RESPIRATORY RATE DECREASED [None]
  - THERAPEUTIC AGENT TOXICITY [None]
  - THROMBOCYTOPENIA [None]
